FAERS Safety Report 8530792-1 (Version None)
Quarter: 2012Q3

REPORT INFORMATION
  Report Type: 
  Country: None (occurrence: None)
  Receive Date: 20120723
  Receipt Date: 20120718
  Transmission Date: 20120928
  Serious: Yes (Hospitalization, Other)
  Sender: FDA-Public Use
  Company Number: US-ROCHE-1075480

PATIENT
  Sex: Female

DRUGS (2)
  1. KEPPRA [Concomitant]
  2. AVASTIN [Suspect]
     Indication: BREAST CANCER

REACTIONS (2)
  - CONVULSION [None]
  - CEREBROVASCULAR ACCIDENT [None]
